FAERS Safety Report 7089269-5 (Version None)
Quarter: 2010Q4

REPORT INFORMATION
  Report Type: 
  Country: None (occurrence: None)
  Receive Date: 20101108
  Receipt Date: 20101029
  Transmission Date: 20110411
  Serious: Yes (Other)
  Sender: FDA-Public Use
  Company Number: US-PFIZER INC-2010138367

PATIENT
  Sex: Female
  Weight: 90.7 kg

DRUGS (20)
  1. LYRICA [Suspect]
     Indication: FIBROMYALGIA
     Dosage: 225 MG, 2X/DAY
     Route: 048
     Dates: start: 20080523, end: 20090423
  2. KLONOPIN [Concomitant]
     Dosage: UNK
  3. TEMAZEPAM [Concomitant]
     Indication: SLEEP DISORDER
     Dosage: UNK
  4. COGENTIN [Concomitant]
     Dosage: UNK
  5. GEODON [Concomitant]
     Dosage: UNK
  6. LEXAPRO [Concomitant]
     Dosage: UNK
  7. CALCIUM CARBONATE [Concomitant]
     Dosage: UNK
  8. FLAXSEED OIL [Concomitant]
     Dosage: UNK
  9. DEPO-PROVERA [Concomitant]
     Dosage: UNK
  10. FISH OIL [Concomitant]
     Dosage: UNK
  11. ASCORBIC ACID [Concomitant]
     Dosage: UNK
  12. COMPAZINE [Concomitant]
     Dosage: UNK
  13. ACETYLSALICYLIC ACID [Concomitant]
     Dosage: UNK
  14. PRAVASTATIN [Concomitant]
     Dosage: UNK
  15. METFORMIN [Concomitant]
     Indication: METABOLIC SYNDROME
     Dosage: UNK
  16. VITAMIN D [Concomitant]
     Dosage: UNK
  17. DOXYCYCLINE [Concomitant]
     Indication: CONSTIPATION
     Dosage: UNK
  18. SENNOSIDES [Concomitant]
     Indication: CONSTIPATION
     Dosage: UNK
  19. FENOFIBRATE [Concomitant]
     Dosage: UNK
  20. OMEPRAZOLE [Concomitant]
     Dosage: UNK

REACTIONS (3)
  - BLOOD CHOLESTEROL INCREASED [None]
  - BLOOD TRIGLYCERIDES INCREASED [None]
  - ENURESIS [None]
